FAERS Safety Report 8847846 (Version 3)
Quarter: 2012Q4

REPORT INFORMATION
  Report Type: Report from Study
  Country: ZA (occurrence: ZA)
  Receive Date: 20121018
  Receipt Date: 20121121
  Transmission Date: 20130627
  Serious: Yes (Other)
  Sender: FDA-Public Use
  Company Number: ZA-ABBOTT-12P-143-0993602-00

PATIENT
  Age: 6 Year
  Sex: Female

DRUGS (4)
  1. RITONAVIR ORAL SOLUTION [Suspect]
     Indication: HIV INFECTION
     Route: 048
     Dates: start: 20120330, end: 20121008
  2. ATAZANAVIR [Concomitant]
     Indication: HIV INFECTION
     Route: 048
     Dates: start: 20120330, end: 20121008
  3. LAMIVUDINE [Concomitant]
     Indication: HIV INFECTION
     Dates: start: 20120330, end: 20121008
  4. ABACAVIR [Concomitant]
     Indication: HIV INFECTION
     Dates: start: 20120330, end: 20121008

REACTIONS (1)
  - Blood bilirubin increased [Recovered/Resolved]
